FAERS Safety Report 5117505-0 (Version None)
Quarter: 2006Q3

REPORT INFORMATION
  Report Type: 
  Country: None (occurrence: None)
  Receive Date: 20060929
  Receipt Date: 20000125
  Transmission Date: 20061208
  Serious: Yes (Disabling)
  Sender: FDA-Public Use
  Company Number: JP-ROCHE-226862

PATIENT
  Age: 23 Year
  Sex: Male

DRUGS (19)
  1. SAQUINAVIR [Suspect]
     Indication: HIV INFECTION
     Route: 048
     Dates: start: 19970211, end: 19970804
  2. SAQUINAVIR [Suspect]
     Route: 048
     Dates: start: 19971111, end: 19980311
  3. NORVIR [Suspect]
     Indication: HIV INFECTION
     Route: 048
     Dates: start: 19960909, end: 19970211
  4. NORVIR [Suspect]
     Route: 048
     Dates: start: 19971111, end: 19980311
  5. D4T [Suspect]
     Route: 048
     Dates: start: 19980114
  6. ZERIT [Suspect]
     Indication: HIV INFECTION
     Route: 048
     Dates: start: 19980114
  7. ZERIT [Suspect]
     Route: 048
     Dates: end: 20040527
  8. ZIAGEN [Suspect]
     Indication: HIV INFECTION
     Route: 048
  9. KALETRA [Suspect]
     Indication: HIV INFECTION
     Route: 048
  10. VIRACEPT [Suspect]
     Route: 048
     Dates: start: 19970804, end: 19971111
  11. VIDEX EC [Suspect]
     Indication: HIV INFECTION
     Route: 048
  12. VIDEX [Concomitant]
     Indication: HIV INFECTION
     Dosage: DATE: 25 DEC 1995 - 09 SEP 1996  DOSE: 100 MG 2/1 DAYS TOTAL DAILY DOSE: 200 MG  DATE: 11 MAR 1998 +
     Route: 048
     Dates: start: 19951030, end: 19951224
  13. RETROVIR [Concomitant]
     Route: 048
     Dates: start: 19930515, end: 19971111
  14. DDI [Concomitant]
     Route: 048
     Dates: start: 19980501
  15. DIFLUCAN [Concomitant]
     Indication: ORAL CANDIDIASIS
     Route: 048
     Dates: start: 19961203, end: 19980720
  16. EPIVIR [Concomitant]
     Dosage: DISCONTINUED FROM 11 NOV 97 UNTIL THE 11 MAR 98, AND IS CONTINUING FROM 11 MARCH 1998.
     Route: 048
     Dates: start: 19970509
  17. RURIOCTOCOG ALFA [Concomitant]
     Dosage: ROUTE = INJECTABLE (NOT OTHERWISE SPECIFIED)
     Route: 050
     Dates: start: 19961101, end: 20040331
  18. BENAMBAX [Concomitant]
     Dosage: FORM = INHALANT ROUTE = RESPIRATORY (INHALATION)
     Route: 055
     Dates: start: 19961101
  19. HIVID [Concomitant]
     Route: 048
     Dates: start: 19970211, end: 19970509

REACTIONS (4)
  - BLOOD TRIGLYCERIDES INCREASED [None]
  - LIVER FUNCTION TEST ABNORMAL [None]
  - OSTEONECROSIS [None]
  - PLATELET COUNT DECREASED [None]
